FAERS Safety Report 6260796-3 (Version None)
Quarter: 2009Q3

REPORT INFORMATION
  Report Type: 
  Country: None (occurrence: None)
  Receive Date: 20090706
  Receipt Date: 20090619
  Transmission Date: 20100115
  Serious: Yes (Death)
  Sender: FDA-Public Use
  Company Number: 2009AL001184

PATIENT
  Age: 79 Year
  Sex: Female

DRUGS (10)
  1. DIGOXIN [Suspect]
     Indication: ATRIAL FIBRILLATION
     Dosage: 0.125MG, DAILY, PO
     Route: 048
  2. ATACAND [Concomitant]
  3. PLAVIX [Concomitant]
  4. GLIMEPIRIDE [Concomitant]
  5. CARVEDILOL [Concomitant]
  6. ZANTAC [Concomitant]
  7. ASPIRIN [Concomitant]
  8. LASIX [Concomitant]
  9. COUMADIN [Concomitant]
  10. SYNTHROID [Concomitant]

REACTIONS (15)
  - BACK PAIN [None]
  - CARDIAC FAILURE CONGESTIVE [None]
  - CHEST PAIN [None]
  - DYSARTHRIA [None]
  - DYSPNOEA [None]
  - ECONOMIC PROBLEM [None]
  - FAMILY STRESS [None]
  - INJURY [None]
  - MUSCULAR WEAKNESS [None]
  - NAUSEA [None]
  - OROPHARYNGEAL PAIN [None]
  - PAIN [None]
  - PYREXIA [None]
  - RENAL FAILURE ACUTE [None]
  - SOCIAL PROBLEM [None]
